FAERS Safety Report 16431794 (Version 1)
Quarter: 2019Q2

REPORT INFORMATION
  Report Type: Spontaneous
  Country: US (occurrence: US)
  Receive Date: 20190614
  Receipt Date: 20190614
  Transmission Date: 20190711
  Serious: No
  Sender: FDA-Public Use
  Company Number: US-JNJFOC-20161112331

PATIENT
  Sex: Male

DRUGS (3)
  1. METHYLPHENIDATE. [Concomitant]
     Active Substance: METHYLPHENIDATE
     Route: 065
     Dates: end: 20060420
  2. RISPERIDONE. [Suspect]
     Active Substance: RISPERIDONE
     Indication: PRODUCT USED FOR UNKNOWN INDICATION
     Route: 065
     Dates: end: 20050602
  3. TROMETHAMINE. [Concomitant]
     Active Substance: TROMETHAMINE
     Route: 065
     Dates: end: 20070216

REACTIONS (3)
  - Sedation [Unknown]
  - Drug ineffective [Unknown]
  - Drug hypersensitivity [Unknown]
